FAERS Safety Report 12871636 (Version 2)
Quarter: 2016Q4

REPORT INFORMATION
  Report Type: Spontaneous
  Country: US (occurrence: US)
  Receive Date: 20161021
  Receipt Date: 20161110
  Transmission Date: 20170207
  Serious: Yes (Other)
  Sender: FDA-Public Use
  Company Number: US-009507513-1610USA008709

PATIENT
  Age: 51 Year
  Sex: Female

DRUGS (3)
  1. ZOLINZA [Suspect]
     Active Substance: VORINOSTAT
     Indication: TRIPLE NEGATIVE BREAST CANCER
     Dosage: UNK
     Dates: start: 20130514
  2. SORAFENIB [Suspect]
     Active Substance: SORAFENIB
     Indication: TRIPLE NEGATIVE BREAST CANCER
     Dosage: UNK
     Dates: start: 20130514
  3. PACLITAXEL. [Suspect]
     Active Substance: PACLITAXEL
     Indication: METASTASES TO BONE
     Dosage: UNK

REACTIONS (3)
  - Asthenia [Unknown]
  - Gastrointestinal toxicity [Unknown]
  - Bone marrow toxicity [Unknown]
